FAERS Safety Report 14109711 (Version 1)
Quarter: 2017Q4

REPORT INFORMATION
  Report Type: Spontaneous
  Country: US (occurrence: US)
  Receive Date: 20171020
  Receipt Date: 20171020
  Transmission Date: 20180321
  Serious: No
  Sender: FDA-Public Use
  Company Number: US-TEVA-799045ACC

PATIENT
  Sex: Female

DRUGS (1)
  1. HYDROXYCHLOROQUINE [Suspect]
     Active Substance: HYDROXYCHLOROQUINE
     Indication: RHEUMATOID ARTHRITIS
     Dosage: 400 MILLIGRAM DAILY; 200MG TABLET TWICE A DAY BY MOUTH
     Dates: start: 20120125, end: 201201

REACTIONS (2)
  - Urticaria [Recovered/Resolved]
  - Drug intolerance [Unknown]
